FAERS Safety Report 9788489 (Version 1)
Quarter: 2013Q4

REPORT INFORMATION
  Report Type: Spontaneous
  Country: US (occurrence: US)
  Receive Date: 20131230
  Receipt Date: 20131230
  Transmission Date: 20140711
  Serious: Yes (Death, Other)
  Sender: FDA-Public Use
  Company Number: US-GILEAD-2013-0090895

PATIENT
  Age: 68 Year
  Sex: Female

DRUGS (12)
  1. LETAIRIS [Suspect]
     Indication: PRODUCT USED FOR UNKNOWN INDICATION
     Dosage: 10 MG, QD
     Route: 048
     Dates: start: 20120730, end: 20131202
  2. ASPIRIN [Concomitant]
  3. SODIUM CHLORIDE [Concomitant]
  4. ENALAPRIL MALEATE [Concomitant]
  5. BUMETANIDE [Concomitant]
  6. FISH OIL [Concomitant]
  7. MULTIVITAMIN                       /00097801/ [Concomitant]
  8. NITROGLYCERINE [Concomitant]
  9. HYDROCODONE [Concomitant]
  10. BACTROBAN [Concomitant]
  11. MARINOL [Concomitant]
  12. MORPHINE SULFATE [Concomitant]

REACTIONS (1)
  - Death [Fatal]
